FAERS Safety Report 9973065 (Version 2)
Quarter: 2014Q1

REPORT INFORMATION
  Report Type: Report from Study
  Country: CA (occurrence: CA)
  Receive Date: 20140306
  Receipt Date: 20140306
  Transmission Date: 20141002
  Serious: Yes (Other)
  Sender: FDA-Public Use
  Company Number: CA-BRISTOL-MYERS SQUIBB COMPANY-16152555

PATIENT
  Age: 43 Year
  Sex: Female
  Weight: 125 kg

DRUGS (3)
  1. ORENCIA [Suspect]
     Indication: RHEUMATOID ARTHRITIS
     Dosage: LD:07SEP11,2NOV,30NOV,25JN12,22FEB12;MAR14;19APR,10JUL,07AUG,3OT12.INF:21EX:MA12,SE14,AL15 L#2D73510
     Route: 042
     Dates: start: 20110714
  2. METHOTREXATE [Concomitant]
  3. FOLIC ACID [Concomitant]

REACTIONS (18)
  - Sarcoidosis [Unknown]
  - Bronchitis [Unknown]
  - Laryngitis [Unknown]
  - Headache [Recovering/Resolving]
  - Fatigue [Unknown]
  - Local swelling [Unknown]
  - Productive cough [Unknown]
  - Sinusitis [Unknown]
  - Oral herpes [Unknown]
  - Hypothyroidism [Unknown]
  - Diarrhoea [Recovering/Resolving]
  - Melanocytic naevus [Unknown]
  - Tenderness [Unknown]
  - Abscess [Recovered/Resolved]
  - Upper respiratory tract infection [Recovered/Resolved]
  - Abdominal abscess [Recovering/Resolving]
  - Psoriasis [Unknown]
  - Ear infection [Recovered/Resolved]
